FAERS Safety Report 9180880 (Version 1)
Quarter: 2013Q1

REPORT INFORMATION
  Report Type: Spontaneous
  Country: CN (occurrence: None)
  Receive Date: 20130320
  Receipt Date: 20130320
  Transmission Date: 20140127
  Serious: Yes (Hospitalization)
  Sender: FDA-Public Use
  Company Number: SYM-2013-01595

PATIENT
  Sex: Female

DRUGS (6)
  1. 5-FU [Suspect]
     Indication: BREAST CANCER
     Dosage: 500 MG/M2, EVERY THREE WEEKS
  2. CYCLOPHOSPHAMIDE [Suspect]
     Indication: BREAST CANCER
     Dosage: 500 MG/M2, EVERY THREE WEEKS.
  3. EPIRUBICIN (EPIRUBICIN) (EPIRUBICIN) [Suspect]
     Indication: BREAST CANCER
     Dosage: 100 MG/M2, EVERY THREE WEEKS.
  4. DEXAMETHASONE (DEXAMETHASONE) (DEXAMETHASONE) [Concomitant]
  5. CELECOXIB (CELECOXIB) (CELECOXIB) [Concomitant]
  6. UNSPECIFIED INGREDIENT [Concomitant]

REACTIONS (1)
  - Abdominal pain [None]
